FAERS Safety Report 7412625-X (Version None)
Quarter: 2011Q2

REPORT INFORMATION
  Report Type: 
  Country: None (occurrence: None)
  Receive Date: 20110413
  Receipt Date: 20110412
  Transmission Date: 20111010
  Serious: Yes (Hospitalization, Other)
  Sender: FDA-Public Use
  Company Number: IL-JNJFOC-20110403140

PATIENT
  Age: 73 Year
  Sex: Male

DRUGS (2)
  1. KETOCONAZOLE [Suspect]
     Indication: FUNGAL INFECTION
     Route: 065
  2. SIMVASTATIN [Interacting]
     Indication: HYPERCHOLESTEROLAEMIA
     Route: 065

REACTIONS (4)
  - CONTRAINDICATION TO MEDICAL TREATMENT [None]
  - RHABDOMYOLYSIS [None]
  - HEPATOTOXICITY [None]
  - DRUG INTERACTION [None]
